FAERS Safety Report 25912613 (Version 1)
Quarter: 2025Q4

REPORT INFORMATION
  Report Type: Other
  Country: EU (occurrence: EU)
  Receive Date: 20251013
  Receipt Date: 20251013
  Transmission Date: 20260118
  Serious: Yes (Hospitalization)
  Sender: ZYDUS PHARM
  Company Number: None

PATIENT

DRUGS (5)
  1. LEVOFLOXACIN [Suspect]
     Active Substance: LEVOFLOXACIN
     Indication: Osteomyelitis
     Dosage: 750 MILLIGRAM, QD
     Route: 048
     Dates: start: 20250731, end: 20250906
  2. RIFAMPIN SODIUM [Suspect]
     Active Substance: RIFAMPIN SODIUM
     Indication: Osteomyelitis
     Dosage: 900 MILLIGRAM, QD
     Route: 048
     Dates: start: 20250731, end: 20250906
  3. DAPTOMYCIN [Suspect]
     Active Substance: DAPTOMYCIN
     Indication: Osteomyelitis
     Dosage: UNK
     Route: 042
     Dates: start: 20250722, end: 20250729
  4. PIPERACILLIN SODIUM\TAZOBACTAM SODIUM [Suspect]
     Active Substance: PIPERACILLIN SODIUM\TAZOBACTAM SODIUM
     Indication: Osteomyelitis
     Dosage: UNK
     Route: 042
     Dates: start: 20250722, end: 20250729
  5. DAFALGAN CODEINE [Suspect]
     Active Substance: ACETAMINOPHEN\CODEINE PHOSPHATE
     Indication: Osteomyelitis
     Dosage: UNK
     Route: 048
     Dates: start: 20250731, end: 20250908

REACTIONS (1)
  - Drug reaction with eosinophilia and systemic symptoms [Recovering/Resolving]

NARRATIVE: CASE EVENT DATE: 20250825
